FAERS Safety Report 20435696 (Version 3)
Quarter: 2022Q1

REPORT INFORMATION
  Report Type: Spontaneous
  Country: TR (occurrence: TR)
  Receive Date: 20220207
  Receipt Date: 20220328
  Transmission Date: 20220423
  Serious: Yes (Hospitalization, Other)
  Sender: FDA-Public Use
  Company Number: TR-NOVOPROD-859028

PATIENT
  Age: 30 Year
  Sex: Female
  Weight: 107 kg

DRUGS (9)
  1. LEVEMIR [Suspect]
     Active Substance: INSULIN DETEMIR
     Dosage: 40 IU, QD (10 IU MORNING AND 30 IU NIGHT)
     Route: 065
     Dates: start: 20211028, end: 20211123
  2. LEVEMIR [Suspect]
     Active Substance: INSULIN DETEMIR
     Indication: Gestational diabetes
     Dosage: 28 IU, QD
     Route: 058
     Dates: start: 20210826, end: 20211028
  3. NOVORAPID [Suspect]
     Active Substance: INSULIN ASPART
     Dosage: 24 IU, QD (MORNING)
     Route: 058
     Dates: start: 20211028, end: 20211123
  4. NOVORAPID [Suspect]
     Active Substance: INSULIN ASPART
     Indication: Gestational diabetes
     Dosage: 14 IU, QD
     Route: 058
     Dates: start: 20210908, end: 20211028
  5. MAGNORM [Concomitant]
     Indication: Pregnancy
     Dosage: ONCE A DAY
     Route: 065
  6. BENEXOL [CYANOCOBALAMIN;PYRIDOXINE HYDROCHLORIDE;THIAMINE HYDROCHLORID [Concomitant]
     Indication: Pregnancy
     Dosage: ONCE A DAY
     Route: 065
  7. GYNOTARDYFERON [Concomitant]
     Indication: Pregnancy
     Dosage: ONCE A DAY
     Route: 065
  8. REGENESIS [ASCORBIC ACID;BETACAROTENE;BIOTIN;CALCIUM PANTOTHENATE;COPP [Concomitant]
     Indication: Pregnancy
     Dosage: ONCE A DAY
     Route: 065
  9. COLEDAN [Concomitant]
     Indication: Pregnancy
     Dosage: 10 DROPS DAILY
     Route: 065

REACTIONS (3)
  - Hypertension [Recovered/Resolved]
  - Premature delivery [Unknown]
  - Maternal exposure during pregnancy [Recovered/Resolved]

NARRATIVE: CASE EVENT DATE: 20210826
